FAERS Safety Report 16591534 (Version 1)
Quarter: 2019Q3

REPORT INFORMATION
  Report Type: Spontaneous
  Country: US (occurrence: US)
  Receive Date: 20190604
  Receipt Date: 20190604
  Transmission Date: 20191004
  Serious: Yes (Hospitalization)
  Sender: FDA-Public Use
  Company Number: None

PATIENT
  Age: 49 Year
  Sex: Male
  Weight: 117.5 kg

DRUGS (6)
  1. CYCLOPHOSPHAMIDE. [Suspect]
     Active Substance: CYCLOPHOSPHAMIDE
     Dates: end: 20170313
  2. METHOTREXATE. [Suspect]
     Active Substance: METHOTREXATE
     Dates: end: 20170320
  3. DEXAMETHASONE. [Suspect]
     Active Substance: DEXAMETHASONE
     Dates: end: 20170313
  4. CYTARABINE. [Suspect]
     Active Substance: CYTARABINE
     Dates: end: 20170323
  5. MERCAPTOPURINE. [Suspect]
     Active Substance: MERCAPTOPURINE
     Dates: end: 20170326
  6. ONCASPAR [Suspect]
     Active Substance: PEGASPARGASE
     Dates: end: 20170327

REACTIONS (18)
  - Muscle oedema [None]
  - Soft tissue infection [None]
  - Bone pain [None]
  - Ligament disorder [None]
  - Muscle strain [None]
  - Ligament sprain [None]
  - Anaemia [None]
  - Bone marrow leukaemic cell infiltration [None]
  - Arthralgia [None]
  - Osteonecrosis [None]
  - Transfusion reaction [None]
  - Leukopenia [None]
  - Inadequate analgesia [None]
  - Oedema [None]
  - Crystal arthropathy [None]
  - Gout [None]
  - Nuclear magnetic resonance imaging spinal abnormal [None]
  - Febrile neutropenia [None]

NARRATIVE: CASE EVENT DATE: 20170405
